FAERS Safety Report 8394628-4 (Version None)
Quarter: 2012Q2

REPORT INFORMATION
  Report Type: 
  Country: None (occurrence: None)
  Receive Date: 20120530
  Receipt Date: 20120518
  Transmission Date: 20120825
  Serious: Yes (Death, Other)
  Sender: FDA-Public Use
  Company Number: BR-RANBAXY-2012R5-56690

PATIENT
  Sex: Female
  Weight: 28 kg

DRUGS (1)
  1. AMOXICILLIN AND CLAVULANATE POTASSIUM [Suspect]
     Indication: SINUSITIS
     Dosage: 8 ML, BID
     Route: 048
     Dates: start: 20120515, end: 20120517

REACTIONS (5)
  - PYREXIA [None]
  - DRUG INEFFECTIVE [None]
  - VOMITING [None]
  - HEADACHE [None]
  - DELIRIUM [None]
